FAERS Safety Report 22636489 (Version 3)
Quarter: 2023Q4

REPORT INFORMATION
  Report Type: Spontaneous
  Country: US (occurrence: US)
  Receive Date: 20230623
  Receipt Date: 20231019
  Transmission Date: 20240110
  Serious: Yes (Other)
  Sender: FDA-Public Use
  Company Number: US-PFIZER INC-PV202300003363

PATIENT
  Age: 72 Year
  Sex: Female
  Weight: 61.678 kg

DRUGS (1)
  1. IBRANCE [Suspect]
     Active Substance: PALBOCICLIB
     Indication: Breast cancer metastatic
     Dosage: 125 MG, CYCLIC (ONCE A DAY FOR 3 WEEKS AND THEN OFF A WEEK)
     Dates: start: 2022

REACTIONS (3)
  - Foot fracture [Unknown]
  - White blood cell count decreased [Not Recovered/Not Resolved]
  - Granulocyte count decreased [Recovering/Resolving]

NARRATIVE: CASE EVENT DATE: 20230601
